FAERS Safety Report 9200060 (Version 2)
Quarter: 2013Q2

REPORT INFORMATION
  Report Type: Spontaneous
  Country: SK (occurrence: SK)
  Receive Date: 20130329
  Receipt Date: 20130410
  Transmission Date: 20140414
  Serious: Yes (Death)
  Sender: FDA-Public Use
  Company Number: SK-PFIZER INC-2013100132

PATIENT
  Age: 67 Year
  Sex: Male

DRUGS (6)
  1. VANCOMYCIN HCL [Suspect]
  2. SULPERAZONE [Suspect]
  3. ZYVOXID [Suspect]
  4. TIGECYCLINE [Suspect]
  5. DIFLUCAN [Suspect]
  6. TIENAM [Suspect]

REACTIONS (1)
  - Mediastinitis [Fatal]
